FAERS Safety Report 7414631-8 (Version None)
Quarter: 2011Q2

REPORT INFORMATION
  Report Type: 
  Country: None (occurrence: None)
  Receive Date: 20110414
  Receipt Date: 20110405
  Transmission Date: 20111010
  Serious: Yes (Other)
  Sender: FDA-Public Use
  Company Number: FR-SANOFI-AVENTIS-2011SA021806

PATIENT
  Age: 52 Year
  Sex: Female

DRUGS (8)
  1. SERETIDE [Suspect]
     Indication: ASTHMA
     Route: 055
  2. VENTOLIN [Suspect]
     Indication: ASTHMA
     Route: 055
  3. AERIUS [Suspect]
     Indication: ASTHMA
     Route: 055
  4. METFORMIN [Suspect]
     Route: 048
     Dates: start: 20090101
  5. ISOMERIDE [Suspect]
     Route: 048
     Dates: start: 19880101, end: 19920101
  6. MEDIATOR [Suspect]
     Route: 048
     Dates: start: 20050101, end: 20090101
  7. KARDEGIC [Suspect]
     Indication: THROMBOSIS PROPHYLAXIS
     Route: 048
  8. STILNOX [Suspect]
     Indication: SLEEP DISORDER
     Route: 048

REACTIONS (2)
  - CHRONIC OBSTRUCTIVE PULMONARY DISEASE [None]
  - AORTIC VALVE DISEASE [None]
